FAERS Safety Report 7523363-7 (Version None)
Quarter: 2011Q2

REPORT INFORMATION
  Report Type: 
  Country: None (occurrence: None)
  Receive Date: 20110603
  Receipt Date: 20110526
  Transmission Date: 20111010
  Serious: Yes (Hospitalization)
  Sender: FDA-Public Use
  Company Number: B0636200A

PATIENT
  Sex: Female

DRUGS (3)
  1. GABAPENTIN [Concomitant]
     Indication: EPILEPSY
     Route: 048
     Dates: start: 20090928, end: 20100201
  2. LAMICTAL [Suspect]
     Indication: EPILEPSY
     Dosage: 25MG PER DAY
     Route: 048
     Dates: start: 20100201, end: 20100213
  3. DEPAKENE [Concomitant]
     Indication: EPILEPSY
     Dosage: 300MG TWICE PER DAY
     Route: 048
     Dates: start: 20080601, end: 20100215

REACTIONS (16)
  - STEVENS-JOHNSON SYNDROME [None]
  - PYREXIA [None]
  - GENERALISED ERYTHEMA [None]
  - ORAL MUCOSA EROSION [None]
  - MUCOSAL INFLAMMATION [None]
  - CHEILITIS [None]
  - LIVER DISORDER [None]
  - ERYTHEMA [None]
  - SKIN EROSION [None]
  - HEPATIC ENZYME INCREASED [None]
  - BLISTER [None]
  - JAUNDICE [None]
  - RASH [None]
  - LYMPHADENOPATHY [None]
  - VISUAL IMPAIRMENT [None]
  - RETINITIS [None]
